FAERS Safety Report 6015803-X (Version None)
Quarter: 2008Q4

REPORT INFORMATION
  Report Type: 
  Country: None (occurrence: None)
  Receive Date: 20081216
  Receipt Date: 20050614
  Transmission Date: 20090506
  Serious: Yes (Other)
  Sender: FDA-Public Use
  Company Number: HQWYE504216JUN05

PATIENT
  Sex: Male
  Weight: 13.17 kg

DRUGS (1)
  1. EFFEXOR XR [Suspect]
     Dosage: TRANSPLACENTAL
     Route: 064

REACTIONS (5)
  - DEVELOPMENTAL DELAY [None]
  - FEEDING DISORDER OF INFANCY OR EARLY CHILDHOOD [None]
  - HYPOTONIA NEONATAL [None]
  - SPEECH DISORDER DEVELOPMENTAL [None]
  - UNDERWEIGHT [None]
